FAERS Safety Report 21591293 (Version 1)
Quarter: 2022Q4

REPORT INFORMATION
  Report Type: Spontaneous
  Country: US (occurrence: US)
  Receive Date: 20221114
  Receipt Date: 20221114
  Transmission Date: 20230112
  Serious: No
  Sender: FDA-Public Use
  Company Number: US-SANOFI-01356188

PATIENT
  Sex: Female

DRUGS (1)
  1. DUPIXENT [Suspect]
     Active Substance: DUPILUMAB
     Indication: Autoimmune disorder
     Dosage: UNK

REACTIONS (5)
  - Dry skin [Unknown]
  - Skin burning sensation [Unknown]
  - Urticaria [Unknown]
  - Skin exfoliation [Unknown]
  - Product use in unapproved indication [Unknown]
